FAERS Safety Report 19916800 (Version 1)
Quarter: 2021Q4

REPORT INFORMATION
  Report Type: Spontaneous
  Country: US (occurrence: US)
  Receive Date: 20211004
  Receipt Date: 20211004
  Transmission Date: 20220303
  Serious: Yes (Hospitalization)
  Sender: FDA-Public Use
  Company Number: None

PATIENT
  Age: 41 Year
  Sex: Female

DRUGS (8)
  1. DALFAMPRIDINE [Suspect]
     Active Substance: DALFAMPRIDINE
     Indication: Multiple sclerosis
     Dosage: ?          OTHER DOSE:1 TAB;
     Route: 048
     Dates: start: 20190102
  2. AUBAGIO [Concomitant]
     Active Substance: TERIFLUNOMIDE
  3. AMPHET/DEXTR ER [Concomitant]
  4. BACLOFEN [Concomitant]
     Active Substance: BACLOFEN
  5. IRON [Concomitant]
     Active Substance: IRON
  6. BUSPIRONE [Concomitant]
     Active Substance: BUSPIRONE HYDROCHLORIDE
  7. DICLOFENAC SODIUM [Concomitant]
     Active Substance: DICLOFENAC SODIUM
  8. MISOPROSTOL [Concomitant]
     Active Substance: MISOPROSTOL

REACTIONS (2)
  - Food poisoning [None]
  - Therapy interrupted [None]

NARRATIVE: CASE EVENT DATE: 20211002
